FAERS Safety Report 16709444 (Version 1)
Quarter: 2019Q3

REPORT INFORMATION
  Report Type: Spontaneous
  Country: DE (occurrence: DE)
  Receive Date: 20190816
  Receipt Date: 20190816
  Transmission Date: 20191004
  Serious: Yes (Hospitalization)
  Sender: FDA-Public Use
  Company Number: DE-ACCORD-151354

PATIENT
  Age: 80 Year
  Sex: Female

DRUGS (16)
  1. DIGITOXIN [Concomitant]
     Active Substance: DIGITOXIN
     Dosage: 0-1-0-0
  2. OMEPRAZOLE. [Concomitant]
     Active Substance: OMEPRAZOLE
     Dosage: 0-0-1-0, IF NEEDED
  3. QUETIAPINE. [Suspect]
     Active Substance: QUETIAPINE
     Indication: PRODUCT USED FOR UNKNOWN INDICATION
     Dosage: 0-0-0-1
  4. ATORVASTATIN [Concomitant]
     Active Substance: ATORVASTATIN
     Dosage: 0-0-1-0
  5. MOVICOL [Concomitant]
     Active Substance: POLYETHYLENE GLYCOL 3350\POTASSIUM CHLORIDE\SODIUM BICARBONATE\SODIUM CHLORIDE
     Dosage: 1-0-0-0
  6. TORASEMIDE [Concomitant]
     Active Substance: TORSEMIDE
     Dosage: 1-1-0-0
  7. LEVOTHYROXINE. [Concomitant]
     Active Substance: LEVOTHYROXINE
     Dosage: 1-0-0-0
  8. ARNICA MONTANA. [Concomitant]
     Active Substance: HOMEOPATHICS
     Dosage: 5-5-5-0, GLOBULI
  9. METAMIZOLE SODIUM [Concomitant]
     Active Substance: METAMIZOLE SODIUM
     Dosage: 1-1-1-0
  10. HYDROMORPHONE/HYDROMORPHONE HYDROCHLORIDE [Suspect]
     Active Substance: HYDROMORPHONE
     Indication: PRODUCT USED FOR UNKNOWN INDICATION
     Dosage: 1-0-1-0
  11. QUETIAPINE. [Suspect]
     Active Substance: QUETIAPINE
     Indication: PRODUCT USED FOR UNKNOWN INDICATION
     Dosage: 0-0-0-1
  12. PHENPROCOUMON [Concomitant]
     Active Substance: PHENPROCOUMON
     Dosage: PAUSED SINCE 22.12.2017
  13. METOPROLOL. [Concomitant]
     Active Substance: METOPROLOL
     Dosage: 0.5-0-0-0
  14. DULOXETINE. [Suspect]
     Active Substance: DULOXETINE
     Indication: PRODUCT USED FOR UNKNOWN INDICATION
     Dosage: 90 MG, 1-0-0-0
  15. REKAWAN [Concomitant]
     Active Substance: POTASSIUM CHLORIDE
     Dosage: 1-0-0-0, STRENGTH: 1000 MG
  16. HYDROCHLOROTHIAZIDE/LOSARTAN POTASSIUM [Concomitant]
     Dosage: 50/12.5 MG, 1-0-0-0

REACTIONS (2)
  - Somnolence [Unknown]
  - Disorientation [Unknown]

NARRATIVE: CASE EVENT DATE: 20180101
